FAERS Safety Report 15436397 (Version 1)
Quarter: 2018Q3

REPORT INFORMATION
  Report Type: Spontaneous
  Country: US (occurrence: US)
  Receive Date: 20180927
  Receipt Date: 20180927
  Transmission Date: 20181010
  Serious: Yes (Other)
  Sender: FDA-Public Use
  Company Number: US-PFIZER INC-2018386356

PATIENT
  Sex: Female

DRUGS (3)
  1. GABAPENTIN. [Suspect]
     Active Substance: GABAPENTIN
     Dosage: UNK
  2. TRAMADOL. [Suspect]
     Active Substance: TRAMADOL
     Dosage: UNK (4 TRAMADOL)
  3. TRAMADOL. [Suspect]
     Active Substance: TRAMADOL
     Dosage: UNK (ONE TRAMADOL )

REACTIONS (2)
  - Cerebrovascular accident [Unknown]
  - Seizure [Unknown]
